FAERS Safety Report 8778296 (Version 1)
Quarter: 2012Q4

REPORT INFORMATION
  Report Type: 
  Country: IE (occurrence: IE)
  Receive Date: 20120912
  Receipt Date: 20120912
  Transmission Date: 20130627
  Serious: Yes (Hospitalization, Other)
  Sender: FDA-Public Use
  Company Number: IE-ASTRAZENECA-2012SE69673

PATIENT
  Age: 22 Year
  Sex: Male

DRUGS (9)
  1. QUETIAPINE [Suspect]
     Indication: PSYCHOTIC DISORDER
     Route: 048
     Dates: start: 200907
  2. QUETIAPINE [Suspect]
     Indication: PSYCHOTIC DISORDER
     Route: 048
  3. CLOZARIL [Suspect]
     Indication: SCHIZOPHRENIA
     Route: 048
     Dates: start: 20090112, end: 20120322
  4. EPILIM [Suspect]
     Route: 065
  5. ZISPIN [Concomitant]
  6. DIAZEPAM [Concomitant]
     Dates: start: 2006
  7. VALPROATE SODIUM [Concomitant]
  8. MIRTAZAPINE [Concomitant]
  9. STILNOCT [Concomitant]

REACTIONS (4)
  - Mental disorder [Unknown]
  - Neutropenia [Recovered/Resolved]
  - Oropharyngeal pain [Unknown]
  - Blood pressure increased [Unknown]
